FAERS Safety Report 15028334 (Version 1)
Quarter: 2018Q2

REPORT INFORMATION
  Report Type: Spontaneous
  Country: US (occurrence: US)
  Receive Date: 20180619
  Receipt Date: 20180619
  Transmission Date: 20180711
  Serious: No
  Sender: FDA-Public Use
  Company Number: US-009507513-1806USA004414

PATIENT
  Sex: Female

DRUGS (1)
  1. PROVENTIL [Suspect]
     Active Substance: ALBUTEROL
     Dosage: TWO INHALATIONS TWICE A DAY
     Route: 055

REACTIONS (2)
  - Nasopharyngitis [Unknown]
  - Bronchitis [Unknown]

NARRATIVE: CASE EVENT DATE: 20180604
